FAERS Safety Report 24762290 (Version 1)
Quarter: 2024Q4

REPORT INFORMATION
  Report Type: Spontaneous
  Country: US (occurrence: US)
  Receive Date: 20241221
  Receipt Date: 20241221
  Transmission Date: 20250114
  Serious: Yes (Death, Other)
  Sender: ALEXION PHARMACEUTICALS
  Company Number: US-ASTRAZENECA-202412USA016444US

PATIENT
  Age: 35 Year

DRUGS (3)
  1. SEROQUEL [Suspect]
     Active Substance: QUETIAPINE FUMARATE
  2. SALICYLIC ACID [Suspect]
     Active Substance: SALICYLIC ACID
  3. SALICYLIC ACID [Suspect]
     Active Substance: SALICYLIC ACID

REACTIONS (2)
  - Toxicity to various agents [Fatal]
  - Completed suicide [Fatal]
